FAERS Safety Report 8784580 (Version 2)
Quarter: 2012Q4

REPORT INFORMATION
  Report Type: Spontaneous
  Country: US (occurrence: None)
  Receive Date: 20120830
  Receipt Date: 20120913
  Transmission Date: 20130627
  Serious: Yes (Other)
  Sender: FDA-Public Use
  Company Number: JPI-P-024128

PATIENT
  Age: 54 Year
  Sex: Male

DRUGS (6)
  1. XYREM [Suspect]
     Indication: SLEEP APNEA
     Dosage: (4.5 gm,2 in 1 d)
     Route: 048
     Dates: start: 20070917
  2. XYREM [Suspect]
     Indication: CATAPLEXY
     Dosage: (4.5 gm,2 in 1 d)
     Route: 048
     Dates: start: 20070917
  3. XYREM [Suspect]
     Indication: SLEEP APNEA
     Dosage: (4.5 gm, 2 in 1 D)
     Route: 048
  4. XYREM [Suspect]
     Indication: CATAPLEXY
     Dosage: (4.5 gm, 2 in 1 D)
     Route: 048
  5. LOSARTAN [Concomitant]
  6. CLONAZEPAM [Concomitant]

REACTIONS (1)
  - Plasma cell myeloma [None]
